FAERS Safety Report 15080078 (Version 1)
Quarter: 2018Q2

REPORT INFORMATION
  Report Type: Spontaneous
  Country: DE (occurrence: DE)
  Receive Date: 20180627
  Receipt Date: 20180627
  Transmission Date: 20180711
  Serious: Yes (Hospitalization)
  Sender: FDA-Public Use
  Company Number: DE-TEVA-2018-DE-912816

PATIENT
  Age: 81 Year
  Sex: Female

DRUGS (10)
  1. TORASEMID [Concomitant]
     Active Substance: TORSEMIDE
     Dosage: 1-1-0-0
     Route: 065
  2. PANTOPRAZOL [Concomitant]
     Active Substance: PANTOPRAZOLE SODIUM
     Dosage: 1-0-0-0
     Route: 065
  3. EISEN(II) [Concomitant]
     Dosage: 1-0-0-0
     Route: 065
  4. METAMIZOL [Concomitant]
     Active Substance: METAMIZOLE SODIUM
     Dosage: NK MG, 40-40-40-40, TROPFEN
     Route: 065
  5. XIPAMID [Concomitant]
     Active Substance: XIPAMIDE
     Dosage: 1-0-0-0
     Route: 065
  6. ENOXAPARIN [Concomitant]
     Active Substance: ENOXAPARIN
     Dosage: 1-0-1-0
     Route: 065
  7. NALOXON [Concomitant]
     Active Substance: NALOXONE HYDROCHLORIDE
     Dosage: 1-1-1-0
     Route: 048
  8. METOPROLOL. [Suspect]
     Active Substance: METOPROLOL
     Dosage: 0.5-0-0.5-0
     Route: 065
  9. OXYCODON [Concomitant]
     Active Substance: OXYCODONE
     Dosage: 1-1-1-0
     Route: 065
  10. PHENPROCOUMON [Concomitant]
     Active Substance: PHENPROCOUMON
     Dosage: AFTER INR
     Route: 065

REACTIONS (4)
  - Arrhythmia [Unknown]
  - Bradycardia [Unknown]
  - Drug prescribing error [Unknown]
  - Contraindicated product administered [Unknown]
